FAERS Safety Report 12009883 (Version 1)
Quarter: 2016Q1

REPORT INFORMATION
  Report Type: Spontaneous
  Country: US (occurrence: US)
  Receive Date: 20160205
  Receipt Date: 20160205
  Transmission Date: 20160526
  Serious: Yes (Death)
  Sender: FDA-Public Use
  Company Number: US-CIPLA LTD.-2016US00769

PATIENT

DRUGS (2)
  1. DOCETAXEL. [Suspect]
     Active Substance: DOCETAXEL
     Indication: NON-SMALL CELL LUNG CANCER
     Dosage: 30 MG/M2, 30-MINUTE IV INFUSION ON DAYS 1, 8, AND 15 OF A 28-DAY CYCLE
     Route: 042
  2. GEMCITABINE [Suspect]
     Active Substance: GEMCITABINE\GEMCITABINE HYDROCHLORIDE
     Indication: NON-SMALL CELL LUNG CANCER
     Dosage: 800 MG/M2, 30-MINUTE IV INFUSION, ON DAYS 1, 8, AND 15 OF A 28-DAY CYCLE
     Route: 042

REACTIONS (2)
  - Hypoxia [Fatal]
  - Lung infiltration [Fatal]
